FAERS Safety Report 7647458-2 (Version None)
Quarter: 2011Q3

REPORT INFORMATION
  Report Type: 
  Country: None (occurrence: None)
  Receive Date: 20110801
  Receipt Date: 20110725
  Transmission Date: 20111222
  Serious: Yes (Hospitalization)
  Sender: FDA-Public Use
  Company Number: US-GILEAD-2011-0042231

PATIENT
  Sex: Female

DRUGS (3)
  1. LETAIRIS [Suspect]
     Indication: PRODUCT USED FOR UNKNOWN INDICATION
     Route: 048
     Dates: start: 20100312, end: 20110727
  2. REVATIO [Concomitant]
  3. ADCIRCA [Concomitant]

REACTIONS (2)
  - LIVER INJURY [None]
  - LIVER FUNCTION TEST ABNORMAL [None]
